FAERS Safety Report 4852580-X (Version None)
Quarter: 2005Q4

REPORT INFORMATION
  Report Type: 
  Country: None (occurrence: None)
  Receive Date: 20051213
  Receipt Date: 20051123
  Transmission Date: 20060501
  Serious: Yes (Hospitalization, Disabling)
  Sender: FDA-Public Use
  Company Number: PHNR2005AU01659

PATIENT
  Age: 69 Year
  Sex: Female

DRUGS (2)
  1. ZOMETA [Suspect]
     Indication: BREAST CANCER METASTATIC
     Dates: start: 20031101, end: 20051101
  2. AREDIA [Suspect]
     Indication: BREAST CANCER METASTATIC

REACTIONS (10)
  - ABSCESS [None]
  - BONE DISORDER [None]
  - HYPOAESTHESIA ORAL [None]
  - INFUSION SITE ABSCESS [None]
  - ORAL DYSAESTHESIA [None]
  - OSTEONECROSIS [None]
  - PAIN IN JAW [None]
  - SEPSIS [None]
  - SOFT TISSUE INFECTION [None]
  - SWELLING [None]
